FAERS Safety Report 6387451-3 (Version None)
Quarter: 2009Q3

REPORT INFORMATION
  Report Type: 
  Country: None (occurrence: None)
  Receive Date: 20090930
  Receipt Date: 20090915
  Transmission Date: 20100115
  Serious: Yes (Other)
  Sender: FDA-Public Use
  Company Number: 07-002135

PATIENT
  Age: 52 Year
  Sex: Female
  Weight: 56.7 kg

DRUGS (10)
  1. FEMRING [Suspect]
     Indication: HOT FLUSH
     Dosage: 0.05 MG, QD, VAGINAL
     Route: 067
     Dates: start: 20030101
  2. FEMRING [Suspect]
     Indication: NIGHT SWEATS
     Dosage: 0.05 MG, QD, VAGINAL
     Route: 067
     Dates: start: 20030101
  3. FEMRING [Suspect]
     Indication: HOT FLUSH
     Dosage: 0.10 MG, QD, VAGINAL
     Route: 067
     Dates: start: 20030101, end: 20030101
  4. FEMRING [Suspect]
     Indication: NIGHT SWEATS
     Dosage: 0.10 MG, QD, VAGINAL
     Route: 067
     Dates: start: 20030101, end: 20030101
  5. VALIUM /000170011 (DIAZEPAM) [Concomitant]
  6. XANAX [Concomitant]
  7. LOMOTIL /00034001/ (ATROPINE SULFATE, DIPHENOXYLATE HYDROCHLORIDE) [Concomitant]
  8. CELEBREX [Concomitant]
  9. ACIPHEX [Concomitant]
  10. PEPCID /00706001/ (FAMOTIDINE) [Concomitant]

REACTIONS (5)
  - BREAST TENDERNESS [None]
  - DRUG INEFFECTIVE [None]
  - OOPHORECTOMY [None]
  - OVARIAN MASS [None]
  - VULVOVAGINAL PRURITUS [None]
